FAERS Safety Report 13443172 (Version 1)
Quarter: 2017Q2

REPORT INFORMATION
  Report Type: Spontaneous
  Country: QA (occurrence: QA)
  Receive Date: 20170414
  Receipt Date: 20170414
  Transmission Date: 20170830
  Serious: Yes (Hospitalization, Other)
  Sender: FDA-Public Use
  Company Number: QA-STRIDES ARCOLAB LIMITED-2017SP006358

PATIENT

DRUGS (1)
  1. FERROUS GLUCONATE [Suspect]
     Active Substance: FERROUS GLUCONATE
     Indication: IRON DEFICIENCY ANAEMIA
     Dosage: 200 MG, UNKNOWN
     Route: 042

REACTIONS (6)
  - Medication error [Unknown]
  - Abdominal pain [Recovered/Resolved]
  - Iron overload [Recovered/Resolved]
  - Toxicity to various agents [Unknown]
  - Overdose [Unknown]
  - Liver tenderness [Recovered/Resolved]
